FAERS Safety Report 20498823 (Version 1)
Quarter: 2022Q1

REPORT INFORMATION
  Report Type: Spontaneous
  Country: AU (occurrence: AU)
  Receive Date: 20220222
  Receipt Date: 20220222
  Transmission Date: 20220424
  Serious: Yes (Death, Other)
  Sender: FDA-Public Use
  Company Number: AU-ALKEM LABORATORIES LIMITED-AU-ALKEM-2022-01213

PATIENT
  Age: 36 Year
  Sex: Male

DRUGS (3)
  1. FINASTERIDE [Suspect]
     Active Substance: FINASTERIDE
     Indication: Alopecia
     Dosage: 1 MILLIGRAM, OD
     Route: 065
     Dates: start: 20151015, end: 20211214
  2. MINOXIDIL [Concomitant]
     Active Substance: MINOXIDIL
     Indication: Product used for unknown indication
     Dosage: UNK 7%
     Route: 065
     Dates: start: 20151015, end: 20211214
  3. TRETINOIN [Concomitant]
     Active Substance: TRETINOIN
     Indication: Product used for unknown indication
     Dosage: UNK, 0.01
     Route: 065
     Dates: start: 20151015, end: 20211214

REACTIONS (1)
  - Hanging [Fatal]

NARRATIVE: CASE EVENT DATE: 20211214
